FAERS Safety Report 5925818-5 (Version None)
Quarter: 2008Q4

REPORT INFORMATION
  Report Type: 
  Country: None (occurrence: None)
  Receive Date: 20081021
  Receipt Date: 20081010
  Transmission Date: 20090506
  Serious: Yes (Other)
  Sender: FDA-Public Use
  Company Number: US-PFIZER INC-2008085461

PATIENT
  Sex: Male

DRUGS (1)
  1. FLAGYL [Suspect]
     Dates: start: 20070101

REACTIONS (3)
  - AFFECTIVE DISORDER [None]
  - INSOMNIA [None]
  - SARCOIDOSIS [None]
